FAERS Safety Report 6722313-0 (Version None)
Quarter: 2010Q2

REPORT INFORMATION
  Report Type: 
  Country: None (occurrence: None)
  Receive Date: 20100510
  Receipt Date: 20100506
  Transmission Date: 20101027
  Serious: Yes (Hospitalization, Disabling)
  Sender: FDA-Public Use
  Company Number: 2010SP003421

PATIENT
  Age: 59 Year
  Sex: Female

DRUGS (1)
  1. TEMODAL [Suspect]
     Indication: OLIGODENDROGLIOMA
     Dosage: PO
     Route: 048
     Dates: start: 20080512, end: 20100101

REACTIONS (2)
  - BLINDNESS [None]
  - OPTIC NEURITIS [None]
